FAERS Safety Report 21060608 (Version 1)
Quarter: 2022Q3

REPORT INFORMATION
  Report Type: Spontaneous
  Country: NL (occurrence: NL)
  Receive Date: 20220708
  Receipt Date: 20220708
  Transmission Date: 20221027
  Serious: Yes (Other)
  Sender: FDA-Public Use
  Company Number: NL-TEVA-2022-NL-2053957

PATIENT
  Sex: Female

DRUGS (1)
  1. LENALIDOMIDE [Suspect]
     Active Substance: LENALIDOMIDE
     Indication: Product used for unknown indication
     Route: 065
     Dates: start: 2022, end: 2022

REACTIONS (4)
  - Polyneuropathy [Recovering/Resolving]
  - Joint stiffness [Recovering/Resolving]
  - Product packaging difficult to open [Unknown]
  - Emotional disorder [Recovering/Resolving]

NARRATIVE: CASE EVENT DATE: 20220101
